FAERS Safety Report 7964373-5 (Version None)
Quarter: 2011Q4

REPORT INFORMATION
  Report Type: 
  Country: None (occurrence: None)
  Receive Date: 20111208
  Receipt Date: 20111205
  Transmission Date: 20120403
  Serious: Yes (Hospitalization)
  Sender: FDA-Public Use
  Company Number: FR-PFIZER INC-2011295580

PATIENT
  Age: 37 Year
  Sex: Male

DRUGS (4)
  1. RIFAMPIN AND ISONIAZID [Suspect]
     Dosage: UNK
     Route: 048
     Dates: start: 20110115, end: 20110406
  2. SULFASALAZINE [Suspect]
     Dosage: UNK
     Route: 048
     Dates: end: 20110101
  3. VOLTAREN [Suspect]
     Dosage: 75 MG IN THE MORNING AND EVENING AND 50 MG IN THE NOON
     Route: 048
  4. ENBREL [Suspect]
     Dosage: UNK
     Route: 058
     Dates: start: 20110204, end: 20110411

REACTIONS (1)
  - HAIRY CELL LEUKAEMIA [None]
